FAERS Safety Report 24814734 (Version 1)
Quarter: 2025Q1

REPORT INFORMATION
  Report Type: Spontaneous
  Country: US (occurrence: None)
  Receive Date: 20250106
  Receipt Date: 20250106
  Transmission Date: 20250409
  Serious: Yes (Other)
  Sender: FDA-CTU
  Company Number: None

PATIENT
  Age: 78 Year
  Sex: Female
  Weight: 54 kg

DRUGS (14)
  1. RECLAST [Suspect]
     Active Substance: ZOLEDRONIC ACID
     Indication: Osteoporosis
  2. DILTIAZEM [Concomitant]
     Active Substance: DILTIAZEM
  3. ATENOLOL [Concomitant]
     Active Substance: ATENOLOL
  4. GABAPENTIN [Concomitant]
     Active Substance: GABAPENTIN
  5. Atorvistatin [Concomitant]
  6. TRAMADOL [Concomitant]
     Active Substance: TRAMADOL
  7. ZOLOFT [Concomitant]
     Active Substance: SERTRALINE HYDROCHLORIDE
  8. ELIQUIS [Concomitant]
     Active Substance: APIXABAN
  9. MELATONIN [Concomitant]
     Active Substance: MELATONIN
  10. PYRIDOXINE HYDROCHLORIDE [Concomitant]
     Active Substance: PYRIDOXINE HYDROCHLORIDE
  11. Biotiin [Concomitant]
  12. PROBIOTICS NOS [Concomitant]
     Active Substance: PROBIOTICS NOS
  13. CA w/D3 [Concomitant]
  14. senior multivitamin [Concomitant]

REACTIONS (1)
  - Glomerular filtration rate decreased [None]

NARRATIVE: CASE EVENT DATE: 20250102
